FAERS Safety Report 8848346 (Version 1)
Quarter: 2012Q4

REPORT INFORMATION
  Report Type: 
  Country: JP (occurrence: JP)
  Receive Date: 20121018
  Receipt Date: 20121018
  Transmission Date: 20130627
  Serious: Yes (Death, Hospitalization, Other)
  Sender: FDA-Public Use
  Company Number: PHHY2012JP092536

PATIENT
  Age: 88 Year
  Sex: Male

DRUGS (3)
  1. IMATINIB [Suspect]
     Indication: BLAST CRISIS IN MYELOGENOUS LEUKAEMIA
     Dosage: 600 mg, daily
  2. IMATINIB [Suspect]
     Indication: CHRONIC MYELOID LEUKAEMIA
     Dosage: 800 mg, daily
  3. HYDROXYUREA [Concomitant]
     Dosage: 1000 mg, daily
     Route: 042

REACTIONS (10)
  - Subdural haemorrhage [Fatal]
  - Fatigue [Unknown]
  - Decreased appetite [Unknown]
  - Chronic myeloid leukaemia [Unknown]
  - Malignant neoplasm progression [Unknown]
  - Blast cell count increased [Unknown]
  - Generalised oedema [Recovering/Resolving]
  - Pleural effusion [Recovering/Resolving]
  - White blood cell count increased [Unknown]
  - Drug resistance [Unknown]
